FAERS Safety Report 17119618 (Version 3)
Quarter: 2021Q3

REPORT INFORMATION
  Report Type: Spontaneous
  Country: FR (occurrence: FR)
  Receive Date: 20191206
  Receipt Date: 20210924
  Transmission Date: 20211014
  Serious: Yes (Hospitalization, Disabling)
  Sender: FDA-Public Use
  Company Number: FR-B.I. PHARMACEUTICALS,INC./RIDGEFIELD-2019-BI-117012

PATIENT
  Age: 56 Year
  Sex: Male

DRUGS (18)
  1. SIFROL [Suspect]
     Active Substance: PRAMIPEXOLE
     Indication: RESTLESS LEGS SYNDROME
     Dosage: SIFROL 0.18MG, 3 TABLETS IN THE EVENING FOR 3 MONTHS
     Route: 065
     Dates: start: 20081117
  2. SERESTA [Concomitant]
     Active Substance: OXAZEPAM
     Indication: PRODUCT USED FOR UNKNOWN INDICATION
     Route: 065
     Dates: start: 2011, end: 201304
  3. MIANSERINE [MIANSERIN] [Concomitant]
     Active Substance: MIANSERIN HYDROCHLORIDE
     Indication: PRODUCT USED FOR UNKNOWN INDICATION
     Route: 065
     Dates: start: 20111004
  4. SIFROL [Suspect]
     Active Substance: PRAMIPEXOLE
     Route: 065
     Dates: start: 20120302, end: 201204
  5. DEPAMIDE [Concomitant]
     Active Substance: VALPROMIDE
     Indication: BIPOLAR DISORDER
     Route: 065
  6. TRIVASTAL [PIRIBEDIL] [Concomitant]
     Active Substance: PIRIBEDIL
     Dates: start: 2004
  7. DEPAKOTE [Concomitant]
     Active Substance: DIVALPROEX SODIUM
     Indication: BIPOLAR DISORDER
     Route: 065
     Dates: start: 200301, end: 201210
  8. SIFROL [Suspect]
     Active Substance: PRAMIPEXOLE
     Dosage: SIFROL 0.7MG, TWO HALF?TABLETS PER DAY
     Route: 065
     Dates: start: 20090915, end: 200910
  9. SIFROL [Suspect]
     Active Substance: PRAMIPEXOLE
     Dosage: SIFROL 0.7MG TO ONE TABLET IN THE MORNING AND ONE TABLET IN THE EVENING.
     Route: 065
     Dates: start: 201107
  10. VENLAFAXINE [Concomitant]
     Active Substance: VENLAFAXINE HYDROCHLORIDE
     Indication: PRODUCT USED FOR UNKNOWN INDICATION
     Route: 065
     Dates: start: 20111004
  11. ZOLPIDEM [Concomitant]
     Active Substance: ZOLPIDEM TARTRATE
     Indication: INSOMNIA
     Route: 065
     Dates: start: 20111004
  12. TERCIAN [CYAMEMAZINE] [Concomitant]
     Active Substance: CYAMEMAZINE
     Indication: ANXIETY
     Route: 065
     Dates: start: 20111004
  13. SIFROL [Suspect]
     Active Substance: PRAMIPEXOLE
     Dosage: THREE HALF?TABLETS PER DAY
     Route: 065
     Dates: start: 20091023
  14. EFFEXOR [Concomitant]
     Active Substance: VENLAFAXINE HYDROCHLORIDE
     Indication: PRODUCT USED FOR UNKNOWN INDICATION
     Dosage: FORM STRENGTH: 75
     Route: 065
     Dates: start: 2011
  15. PERMIXON [Concomitant]
     Active Substance: HERBALS\SAW PALMETTO
     Indication: PRODUCT USED FOR UNKNOWN INDICATION
     Route: 065
     Dates: start: 20111109
  16. LITHIUM. [Concomitant]
     Active Substance: LITHIUM
     Dates: start: 2002, end: 2008
  17. SIFROL [Suspect]
     Active Substance: PRAMIPEXOLE
     Dosage: SIFROL 0.7MG TO HALF A TABLET IN THE MORNING, HALF A TABLET AT LUNCHTIME AND A WHOLE TABLET IN THE E
     Route: 065
     Dates: start: 20091203, end: 201109
  18. DIVALPROEX [Concomitant]
     Active Substance: DIVALPROEX SODIUM
     Indication: PRODUCT USED FOR UNKNOWN INDICATION
     Route: 065

REACTIONS (19)
  - Procrastination [Not Recovered/Not Resolved]
  - Compulsive shopping [Unknown]
  - Hyperglycaemia [Unknown]
  - Anxiety [Recovered/Resolved]
  - Apathy [Not Recovered/Not Resolved]
  - Emotional disorder [Not Recovered/Not Resolved]
  - Overdose [Recovered/Resolved]
  - General physical health deterioration [Not Recovered/Not Resolved]
  - Depression [Unknown]
  - Hepatic steatosis [Unknown]
  - Eating disorder [Unknown]
  - Peripheral sensory neuropathy [Not Recovered/Not Resolved]
  - Cognitive disorder [Not Recovered/Not Resolved]
  - Obsessive thoughts [Unknown]
  - Lymphadenopathy [Unknown]
  - Hypersexuality [Recovered/Resolved]
  - Bipolar disorder [Not Recovered/Not Resolved]
  - Drug ineffective [Unknown]
  - Back pain [Unknown]

NARRATIVE: CASE EVENT DATE: 2009
